FAERS Safety Report 19886699 (Version 1)
Quarter: 2021Q3

REPORT INFORMATION
  Report Type: Spontaneous
  Country: FI (occurrence: FI)
  Receive Date: 20210928
  Receipt Date: 20210928
  Transmission Date: 20211014
  Serious: Yes (Hospitalization)
  Sender: FDA-Public Use
  Company Number: FI-SUN PHARMACEUTICAL INDUSTRIES LTD-2021RR-312673

PATIENT
  Age: 74 Year
  Sex: Female

DRUGS (4)
  1. AMLODIPIN ORION [Concomitant]
     Indication: HYPERTENSION
     Dosage: 10 MG,DAILY
     Route: 048
     Dates: start: 20201126
  2. PRIMASPAN [Concomitant]
     Active Substance: ASPIRIN
     Indication: THROMBOSIS PROPHYLAXIS
     Dosage: 100 MG,DAILY
     Route: 048
     Dates: start: 20210530
  3. CARDACE [Concomitant]
     Indication: HYPERTENSION
     Dosage: 10 MG,DAILY
     Route: 048
     Dates: start: 20160905, end: 20210820
  4. ATORVASTATIN ORION [Suspect]
     Active Substance: ATORVASTATIN CALCIUM
     Indication: HYPERCHOLESTEROLAEMIA
     Dosage: 80,MG,DAILY
     Route: 048
     Dates: start: 20210530, end: 20210820

REACTIONS (17)
  - Blood bilirubin increased [Recovered/Resolved]
  - Cholelithiasis [Recovered/Resolved]
  - Weight decreased [Recovered/Resolved]
  - Alanine aminotransferase increased [Recovered/Resolved]
  - Blood alkaline phosphatase increased [Recovered/Resolved]
  - Aspartate aminotransferase increased [Recovered/Resolved]
  - Malaise [Recovered/Resolved]
  - Haemoglobin decreased [Recovered/Resolved]
  - C-reactive protein increased [Recovered/Resolved]
  - Amylase increased [Recovered/Resolved]
  - Decreased appetite [Recovered/Resolved]
  - Jaundice [Recovered/Resolved]
  - Blood sodium decreased [Recovered/Resolved]
  - Flank pain [Recovered/Resolved]
  - Faeces pale [Recovered/Resolved]
  - Prothrombin time shortened [Recovered/Resolved]
  - White blood cell count increased [Recovered/Resolved]

NARRATIVE: CASE EVENT DATE: 202106
